FAERS Safety Report 4968939-6 (Version None)
Quarter: 2006Q2

REPORT INFORMATION
  Report Type: 
  Country: None (occurrence: None)
  Receive Date: 20060405
  Receipt Date: 20060317
  Transmission Date: 20061013
  Serious: Yes (Hospitalization)
  Sender: FDA-Public Use
  Company Number: ENTC2006-0047

PATIENT
  Age: 72 Year
  Sex: Male
  Weight: 70.1 kg

DRUGS (5)
  1. STALEVO 100 [Suspect]
     Indication: PARKINSON'S DISEASE
     Dosage: 300 MG, 3 IN 1 D, ORAL
     Route: 048
     Dates: start: 20060117, end: 20060123
  2. PROVENTIL [Concomitant]
  3. MIRAPEX [Concomitant]
  4. LORAZEPAM [Concomitant]
  5. VERAPAMIL [Concomitant]

REACTIONS (6)
  - CARDIAC VENTRICULAR DISORDER [None]
  - CORONARY ARTERY DISEASE [None]
  - DISEASE PROGRESSION [None]
  - DYSPNOEA [None]
  - MYOCARDIAL INFARCTION [None]
  - PULMONARY HYPERTENSION [None]
